FAERS Safety Report 24087604 (Version 3)
Quarter: 2024Q3

REPORT INFORMATION
  Report Type: Spontaneous
  Country: DE (occurrence: DE)
  Receive Date: 20240714
  Receipt Date: 20240807
  Transmission Date: 20241017
  Serious: Yes (Hospitalization)
  Sender: SANDOZ
  Company Number: DE-002147023-NVSC2024DE142807

PATIENT
  Sex: Female

DRUGS (5)
  1. FULVESTRANT [Suspect]
     Active Substance: FULVESTRANT
     Indication: Hormone receptor positive HER2 negative breast cancer
     Dosage: 500 MG (DAILY DOSE), Q4W
     Route: 030
     Dates: start: 20190418
  2. RIBOCICLIB [Suspect]
     Active Substance: RIBOCICLIB
     Dosage: 600 MG, QD (SCHEMA 21 DAYS INTAKE, 7 DAYS PAUSE)
     Route: 048
     Dates: start: 20190624, end: 20200202
  3. RIBOCICLIB [Suspect]
     Active Substance: RIBOCICLIB
     Indication: Hormone receptor positive HER2 negative breast cancer
     Dosage: 600 MG, QD (SCHEMA 21 DAYS INTAKE, 7 DAYS PAUSE)
     Route: 048
     Dates: start: 20190418, end: 20190516
  4. RIBOCICLIB [Suspect]
     Active Substance: RIBOCICLIB
     Dosage: 600 MG, QD (SCHEMA 21 DAYS INTAKE, 7 DAYS PAUSE)
     Route: 048
     Dates: start: 20190523, end: 20190623
  5. RIBOCICLIB [Suspect]
     Active Substance: RIBOCICLIB
     Dosage: 600 MG, QD (SCHEMA 21 DAYS INTAKE, 7 DAYS PAUSE)
     Route: 048
     Dates: start: 20200203

REACTIONS (3)
  - Knee deformity [Recovering/Resolving]
  - Fractured sacrum [Recovering/Resolving]
  - Venous thrombosis limb [Recovered/Resolved]

NARRATIVE: CASE EVENT DATE: 20240604
